FAERS Safety Report 4550456-9 (Version None)
Quarter: 2004Q4

REPORT INFORMATION
  Report Type: 
  Country: None (occurrence: None)
  Receive Date: 20041217
  Receipt Date: 20040827
  Transmission Date: 20050328
  Serious: No
  Sender: FDA-Public Use
  Company Number: 2004-BP-07466BP

PATIENT
  Age: 59 Year
  Sex: Male

DRUGS (3)
  1. SPIRIVA [Suspect]
     Indication: CHRONIC OBSTRUCTIVE AIRWAYS DISEASE
     Dosage: 18 MCG (18 MCG, OD), IH
     Route: 025
     Dates: start: 20040601, end: 20040601
  2. MINOXIDIL [Concomitant]
  3. ALLOPURINOL [Concomitant]

REACTIONS (1)
  - CONSTIPATION [None]
